FAERS Safety Report 10441880 (Version 1)
Quarter: 2014Q3

REPORT INFORMATION
  Report Type: Spontaneous
  Country: US (occurrence: US)
  Receive Date: 20140909
  Receipt Date: 20140909
  Transmission Date: 20150326
  Serious: Yes (Other)
  Sender: FDA-Public Use
  Company Number: US-GLAXOSMITHKLINE-A1086428A

PATIENT
  Age: 84 Year
  Sex: Male

DRUGS (8)
  1. PROAIR HFA [Concomitant]
     Active Substance: ALBUTEROL SULFATE
  2. VOTRIENT [Suspect]
     Active Substance: PAZOPANIB HYDROCHLORIDE
     Indication: MALIGNANT NEOPLASM OF RENAL PELVIS
     Dosage: 800MG PER DAY
     Route: 065
     Dates: start: 201211
  3. PREDNISONE. [Concomitant]
     Active Substance: PREDNISONE
  4. LEVOTHYROXINE [Concomitant]
     Active Substance: LEVOTHYROXINE
  5. WARFARIN [Concomitant]
     Active Substance: WARFARIN
  6. VICODIN [Concomitant]
     Active Substance: ACETAMINOPHEN\HYDROCODONE BITARTRATE
  7. RENA-VITE [Concomitant]
     Active Substance: VITAMINS
  8. ASPIRIN. [Concomitant]
     Active Substance: ASPIRIN

REACTIONS (8)
  - Fatigue [Not Recovered/Not Resolved]
  - Oesophageal obstruction [Unknown]
  - Surgery [Unknown]
  - Fistula [Unknown]
  - Dialysis [Unknown]
  - Endoscopy [Unknown]
  - Asthenia [Unknown]
  - Tooth extraction [Unknown]
